FAERS Safety Report 4610306-9 (Version None)
Quarter: 2005Q1

REPORT INFORMATION
  Report Type: 
  Country: None (occurrence: None)
  Receive Date: 20050314
  Receipt Date: 20050302
  Transmission Date: 20050727
  Serious: Yes (Hospitalization, Other)
  Sender: FDA-Public Use
  Company Number: 163-20785-05030048

PATIENT
  Age: 59 Year
  Sex: Male

DRUGS (1)
  1. THALOMID [Suspect]
     Indication: MYELODYSPLASTIC SYNDROME
     Dosage: 100 MG, QD, ORAL
     Route: 048
     Dates: start: 20050211

REACTIONS (3)
  - ACUTE LEUKAEMIA [None]
  - OEDEMA PERIPHERAL [None]
  - SINUSITIS [None]
